FAERS Safety Report 5085926-0 (Version None)
Quarter: 2006Q3

REPORT INFORMATION
  Report Type: 
  Country: None (occurrence: None)
  Receive Date: 20060817
  Receipt Date: 20060807
  Transmission Date: 20061208
  Serious: Yes (Hospitalization)
  Sender: FDA-Public Use
  Company Number: 2006097397

PATIENT
  Age: 14 Year
  Sex: Female

DRUGS (4)
  1. ZOLOFT [Suspect]
     Indication: AFFECTIVE DISORDER
     Dosage: 100 MG, ORAL
     Route: 048
     Dates: start: 20060424
  2. ZOLOFT [Suspect]
     Indication: ANXIETY DISORDER
     Dosage: 100 MG, ORAL
     Route: 048
     Dates: start: 20060424
  3. CYAMEMAZINE            (CYAMEMAZINE) [Suspect]
     Indication: AFFECTIVE DISORDER
     Dosage: ORAL
     Route: 046
     Dates: start: 20060424
  4. CYAMEMAZINE            (CYAMEMAZINE) [Suspect]
     Indication: ANXIETY DISORDER
     Dosage: ORAL
     Route: 046
     Dates: start: 20060424

REACTIONS (4)
  - CONJUNCTIVAL HAEMORRHAGE [None]
  - DRUG INTERACTION [None]
  - HAEMOPTYSIS [None]
  - INJURY [None]
